FAERS Safety Report 21956387 (Version 2)
Quarter: 2025Q4

REPORT INFORMATION
  Report Type: Spontaneous
  Country: CA (occurrence: CA)
  Receive Date: 20230206
  Receipt Date: 20251113
  Transmission Date: 20260117
  Serious: Yes (Hospitalization)
  Sender: MERCK SHARP & DOHME LLC
  Company Number: None

PATIENT

DRUGS (1)
  1. KEYTRUDA [Suspect]
     Active Substance: PEMBROLIZUMAB
     Indication: Lung cancer metastatic
     Dosage: DOSE DESCRIPTION : 113 MILLIGRAM, 1 EVERY 3 WEEKS (Q3W), STRENGTH: 4 ML SINGLE USE VIAL?DAILY DOS...
     Route: 042

REACTIONS (6)
  - Cerebrovascular accident [Unknown]
  - Colitis [Unknown]
  - Diarrhoea [Unknown]
  - Hypocalcaemia [Unknown]
  - Hypomagnesaemia [Unknown]
  - Hypophosphataemia [Unknown]
